FAERS Safety Report 9760953 (Version 1)
Quarter: 2013Q4

REPORT INFORMATION
  Report Type: Spontaneous
  Country: FR (occurrence: FR)
  Receive Date: 20131216
  Receipt Date: 20131216
  Transmission Date: 20140711
  Serious: Yes (Hospitalization)
  Sender: FDA-Public Use
  Company Number: FR-PFIZER INC-2013357722

PATIENT
  Age: 82 Year
  Sex: Male

DRUGS (6)
  1. CORDARONE [Suspect]
     Indication: ATRIAL FIBRILLATION
     Dosage: 200 MG, DAILY
     Route: 048
  2. BACTRIM FORTE [Concomitant]
     Dosage: UNK
  3. LOVENOX [Concomitant]
     Dosage: UNK
     Dates: start: 20130629
  4. COUMADINE [Concomitant]
     Dosage: UNK
     Dates: end: 20130707
  5. RED BLOOD CELLS [Concomitant]
     Dosage: UNK
  6. VITAMIN K [Concomitant]
     Dosage: UNK

REACTIONS (8)
  - Hypothyroidism [Unknown]
  - Cognitive disorder [Unknown]
  - Cardiac failure [Unknown]
  - Hyponatraemia [Unknown]
  - International normalised ratio increased [Unknown]
  - Muscle haemorrhage [Unknown]
  - Anaemia [Unknown]
  - Liver disorder [Unknown]
